FAERS Safety Report 9812987 (Version 3)
Quarter: 2014Q1

REPORT INFORMATION
  Report Type: Spontaneous
  Country: US (occurrence: US)
  Receive Date: 20140113
  Receipt Date: 20140212
  Transmission Date: 20141002
  Serious: Yes (Other)
  Sender: FDA-Public Use
  Company Number: US-PFIZER INC-2013283309

PATIENT
  Age: 73 Year
  Sex: Female
  Weight: 78.46 kg

DRUGS (20)
  1. LYRICA [Suspect]
     Indication: NERVE INJURY
     Dosage: 150 MG, 3X/DAY
     Dates: start: 2004
  2. LYRICA [Suspect]
     Indication: SURGERY
  3. LYRICA [Suspect]
     Indication: FIBROMYALGIA
  4. ARMOUR THYROID [Concomitant]
     Dosage: 90 MG, 1X/DAY
  5. FLONASE [Concomitant]
     Dosage: 50 MG, 1X/DAY
     Route: 045
  6. XARELTO [Concomitant]
     Indication: ANTICOAGULANT THERAPY
     Dosage: 20 MG, 1X/DAY
  7. FUROSEMIDE [Concomitant]
     Indication: DIURETIC THERAPY
     Dosage: 20 MG, AS NEEDED
  8. OMEPRAZOLE [Concomitant]
     Indication: GASTRIC DISORDER
     Dosage: 20 MG, 1X/DAY
  9. MIRALAX [Concomitant]
     Indication: FAECES HARD
     Dosage: 1 HALF TO 1 LITTLE CUP, 1X/DAY
  10. FENTANYL [Concomitant]
     Dosage: 50 UG, EVERY 3 DAYS
  11. RANITIDINE [Concomitant]
     Dosage: 300 MG, 1X/DAY
  12. OXYCODONE [Concomitant]
     Indication: PAIN
     Dosage: UNK
  13. VOLTAREN [Concomitant]
     Indication: LIMB DISCOMFORT
     Dosage: UNK
  14. VITAMIN B12 [Concomitant]
     Dosage: 500 MG, UNK
  15. CITRACAL + D3 [Concomitant]
     Dosage: 500 MG, UNK
  16. VITAMIN B COMPLEX WITH C [Concomitant]
     Dosage: UNK, 1X/DAY
  17. CENTRUM SILVER [Concomitant]
     Dosage: UNK
  18. OMEGA XL [Concomitant]
     Dosage: UNK, 2X/DAY
  19. SOTALOL [Concomitant]
     Indication: CARDIAC DISORDER
     Dosage: 120 MG, 2X/DAY
  20. TRAMADOL [Concomitant]
     Indication: PAIN
     Dosage: 50 MG, AS NEEDED

REACTIONS (2)
  - Off label use [Unknown]
  - Musculoskeletal disorder [Unknown]
